FAERS Safety Report 16370783 (Version 2)
Quarter: 2019Q2

REPORT INFORMATION
  Report Type: Spontaneous
  Country: US (occurrence: US)
  Receive Date: 20190530
  Receipt Date: 20190620
  Transmission Date: 20190711
  Serious: No
  Sender: FDA-Public Use
  Company Number: US-BAYER-2019-105281

PATIENT
  Age: 30 Year
  Sex: Female

DRUGS (3)
  1. MIRENA [Suspect]
     Active Substance: LEVONORGESTREL
     Indication: CONTRACEPTION
  2. MISOPROSTOL. [Concomitant]
     Active Substance: MISOPROSTOL
     Dosage: 400 ?G, ONCE
     Route: 048
     Dates: start: 20190318, end: 20190318
  3. MIRENA [Suspect]
     Active Substance: LEVONORGESTREL
     Indication: CONTRACEPTION
     Dosage: 20 MCG/24HR, CONT
     Route: 015
     Dates: start: 20190318, end: 20190318

REACTIONS (2)
  - Procedural pain [None]
  - Device deployment issue [None]

NARRATIVE: CASE EVENT DATE: 20190318
